FAERS Safety Report 20085137 (Version 1)
Quarter: 2021Q4

REPORT INFORMATION
  Report Type: Spontaneous
  Country: PL (occurrence: PL)
  Receive Date: 20211118
  Receipt Date: 20211118
  Transmission Date: 20220303
  Serious: Yes (Other)
  Sender: FDA-Public Use
  Company Number: PL-Accord-245072

PATIENT
  Age: 44 Year
  Sex: Female

DRUGS (2)
  1. DOCETAXEL [Suspect]
     Active Substance: DOCETAXEL
     Indication: Leiomyosarcoma
     Dosage: ON DAY 8
     Dates: start: 2019
  2. GEMCITABINE HYDROCHLORIDE [Suspect]
     Active Substance: GEMCITABINE HYDROCHLORIDE
     Indication: Leiomyosarcoma
     Dosage: ON DAYS 1 AND 8, EVERY 3 WEEKS
     Dates: start: 2019

REACTIONS (4)
  - Oedema peripheral [Unknown]
  - Peripheral sensory neuropathy [Unknown]
  - Skin exfoliation [Unknown]
  - Off label use [Unknown]

NARRATIVE: CASE EVENT DATE: 20190101
